FAERS Safety Report 8359573-9 (Version None)
Quarter: 2012Q2

REPORT INFORMATION
  Report Type: 
  Country: None (occurrence: None)
  Receive Date: 20120515
  Receipt Date: 20120507
  Transmission Date: 20120825
  Serious: Yes (Hospitalization)
  Sender: FDA-Public Use
  Company Number: US-ELI_LILLY_AND_COMPANY-US201205003716

PATIENT
  Age: 68 Year
  Sex: Male

DRUGS (1)
  1. HUMAN INSULIN [Suspect]
     Dosage: UNK
     Route: 058

REACTIONS (4)
  - HOSPITALISATION [None]
  - LOCALISED INFECTION [None]
  - INCORRECT DOSE ADMINISTERED [None]
  - ACCIDENTAL OVERDOSE [None]
